FAERS Safety Report 23909247 (Version 2)
Quarter: 2024Q3

REPORT INFORMATION
  Report Type: Spontaneous
  Country: US (occurrence: US)
  Receive Date: 20240528
  Receipt Date: 20240714
  Transmission Date: 20241016
  Serious: No
  Sender: NOVARTIS
  Company Number: US-002147023-NVSC2024US111369

PATIENT
  Age: 63 Year
  Sex: Female

DRUGS (1)
  1. COSENTYX [Suspect]
     Active Substance: SECUKINUMAB
     Indication: Product used for unknown indication
     Dosage: 2, 150 MG (LOADING DOSES)
     Route: 065

REACTIONS (2)
  - Eye disorder [Unknown]
  - Device issue [Unknown]

NARRATIVE: CASE EVENT DATE: 20240513
